FAERS Safety Report 20687570 (Version 2)
Quarter: 2023Q1

REPORT INFORMATION
  Report Type: Spontaneous
  Country: US (occurrence: US)
  Receive Date: 20220408
  Receipt Date: 20230315
  Transmission Date: 20230418
  Serious: No
  Sender: FDA-Public Use
  Company Number: US-JNJFOC-20220364800

PATIENT
  Age: 26 Year
  Sex: Female
  Weight: 66.738 kg

DRUGS (6)
  1. ZYRTEC [Suspect]
     Active Substance: CETIRIZINE HYDROCHLORIDE
     Indication: Rash
     Route: 065
     Dates: start: 2021
  2. BENADRYL [Suspect]
     Active Substance: DIPHENHYDRAMINE HYDROCHLORIDE
     Indication: Rash
     Route: 065
     Dates: start: 2021
  3. COVID-19 VACCINE [Concomitant]
     Indication: Immunisation
     Route: 065
     Dates: start: 20210321
  4. COVID-19 VACCINE [Concomitant]
     Route: 065
     Dates: start: 20210411
  5. COVID-19 VACCINE [Concomitant]
     Route: 065
     Dates: start: 20211015
  6. CLARITIN [Concomitant]
     Active Substance: LORATADINE
     Indication: Rash
     Route: 065
     Dates: start: 2021

REACTIONS (1)
  - Product use in unapproved indication [Unknown]

NARRATIVE: CASE EVENT DATE: 20210101
